FAERS Safety Report 9592875 (Version 1)
Quarter: 2013Q4

REPORT INFORMATION
  Report Type: Spontaneous
  Country: RU (occurrence: RU)
  Receive Date: 20131004
  Receipt Date: 20131004
  Transmission Date: 20140711
  Serious: Yes (Death, Life-Threatening, Hospitalization, Other)
  Sender: FDA-Public Use
  Company Number: RU-MPIJNJ-2013JNJ000413

PATIENT
  Sex: 0

DRUGS (9)
  1. VELCADE [Suspect]
     Indication: PLASMA CELL MYELOMA
     Dosage: UNK
     Route: 065
     Dates: start: 200704
  2. DEXAMETHASONE [Concomitant]
     Indication: PLASMA CELL MYELOMA
     Dosage: UNK
     Dates: start: 200704
  3. DEXAMETHASONE [Concomitant]
     Dosage: 20 MG, UNK
     Route: 042
  4. MELPHALAN [Concomitant]
     Indication: PLASMA CELL MYELOMA
     Dosage: UNK
     Dates: start: 200704
  5. TRILEPTAL [Concomitant]
     Indication: EPILEPSY
     Dosage: 35 MG/KG, QD
  6. FINLEPSIN [Concomitant]
     Indication: EPILEPSY
     Dosage: 30 MG/KG, QD
  7. THALIDOMIDE [Concomitant]
     Indication: PLASMA CELL MYELOMA
  8. ENDOXAN                            /00021101/ [Concomitant]
     Indication: PLASMA CELL MYELOMA
     Dosage: 50 MG, QD
  9. ENDOXAN                            /00021101/ [Concomitant]
     Dosage: UNK

REACTIONS (10)
  - Disease progression [Fatal]
  - Hyperviscosity syndrome [Recovered/Resolved]
  - Drug resistance [Unknown]
  - Splenomegaly [Unknown]
  - Portal hypertension [Unknown]
  - Paraproteinaemia [Unknown]
  - Meningitis [Recovered/Resolved]
  - Haemorrhagic disorder [Recovered/Resolved]
  - Pancytopenia [Unknown]
  - Pneumococcal sepsis [Unknown]
